FAERS Safety Report 23076076 (Version 1)
Quarter: 2023Q4

REPORT INFORMATION
  Report Type: Spontaneous
  Country: US (occurrence: US)
  Receive Date: 20231017
  Receipt Date: 20231017
  Transmission Date: 20240110
  Serious: No
  Sender: FDA-Public Use
  Company Number: US-SA-SAC20231011000412

PATIENT
  Sex: Male

DRUGS (1)
  1. DUPIXENT [Suspect]
     Active Substance: DUPILUMAB
     Indication: Eczema
     Dosage: 200 MG EVERY 4 WEEKS
     Route: 058
     Dates: start: 20230817

REACTIONS (4)
  - Teething [Unknown]
  - Agitation [Unknown]
  - Eczema [Unknown]
  - Drug effect less than expected [Unknown]
